FAERS Safety Report 25478581 (Version 1)
Quarter: 2025Q2

REPORT INFORMATION
  Report Type: Spontaneous
  Country: CN (occurrence: CN)
  Receive Date: 20250625
  Receipt Date: 20250625
  Transmission Date: 20250716
  Serious: Yes (Hospitalization)
  Sender: SANOFI AVENTIS
  Company Number: CN-SA-2025SA177773

PATIENT
  Age: 65 Year
  Sex: Female
  Weight: 65 kg

DRUGS (2)
  1. ENOXAPARIN SODIUM [Suspect]
     Active Substance: ENOXAPARIN SODIUM
     Indication: Rheumatic heart disease
     Dosage: 0.4 ML, BID
     Route: 058
     Dates: start: 20250605, end: 20250607
  2. WARFARIN SODIUM [Suspect]
     Active Substance: WARFARIN SODIUM
     Indication: Rheumatic heart disease
     Dosage: 2.5 MG, QD
     Route: 048
     Dates: start: 20250605, end: 20250607

REACTIONS (2)
  - Coagulation time prolonged [Recovering/Resolving]
  - International normalised ratio increased [Recovering/Resolving]

NARRATIVE: CASE EVENT DATE: 20250607
